FAERS Safety Report 8902522 (Version 3)
Quarter: 2012Q4

REPORT INFORMATION
  Report Type: 
  Country: US (occurrence: US)
  Receive Date: 20121112
  Receipt Date: 20121213
  Transmission Date: 20130627
  Serious: Yes (Hospitalization, Other)
  Sender: FDA-Public Use
  Company Number: US-PFIZER INC-2012281021

PATIENT
  Sex: Female

DRUGS (2)
  1. NORVASC [Suspect]
     Dosage: UNK
  2. ZARONTIN [Suspect]
     Dosage: UNK

REACTIONS (4)
  - Convulsion [Unknown]
  - Hypertension [Unknown]
  - Nervousness [Unknown]
  - Influenza [Unknown]
